FAERS Safety Report 14806206 (Version 2)
Quarter: 2018Q2

REPORT INFORMATION
  Report Type: Spontaneous
  Country: US (occurrence: US)
  Receive Date: 20180425
  Receipt Date: 20180526
  Transmission Date: 20180711
  Serious: No
  Sender: FDA-Public Use
  Company Number: US-TEVA-2018-US-867862

PATIENT
  Age: 46 Year
  Sex: Female

DRUGS (3)
  1. REGLAN [Concomitant]
     Active Substance: METOCLOPRAMIDE HYDROCHLORIDE
     Route: 065
  2. ZOFRAN [Concomitant]
     Active Substance: ONDANSETRON HYDROCHLORIDE
     Route: 065
  3. ACTIQ [Suspect]
     Active Substance: FENTANYL CITRATE
     Indication: ABDOMINAL PAIN
     Route: 065
     Dates: start: 2011

REACTIONS (1)
  - Product use in unapproved indication [Unknown]
